FAERS Safety Report 18257864 (Version 1)
Quarter: 2020Q3

REPORT INFORMATION
  Report Type: Spontaneous
  Country: US (occurrence: US)
  Receive Date: 20200911
  Receipt Date: 20200911
  Transmission Date: 20201103
  Serious: No
  Sender: FDA-Public Use
  Company Number: US-PFIZER INC-2019120485

PATIENT
  Age: 52 Year
  Sex: Female
  Weight: 71.21 kg

DRUGS (2)
  1. LYRICA [Suspect]
     Active Substance: PREGABALIN
     Indication: NEURALGIA
     Dosage: 50 MG TO 100 MG, EVERY 4 HOURS (6 TIMES DAILY)
  2. LYRICA [Suspect]
     Active Substance: PREGABALIN
     Dosage: 50 MG, EVERY 4 HOURS (6 TIMES DAILY)

REACTIONS (2)
  - Intentional product use issue [Unknown]
  - Drug ineffective [Unknown]
